FAERS Safety Report 10170587 (Version 1)
Quarter: 2014Q2

REPORT INFORMATION
  Report Type: Spontaneous
  Country: GB (occurrence: GB)
  Receive Date: 20140513
  Receipt Date: 20140513
  Transmission Date: 20141212
  Serious: Yes (Other)
  Sender: FDA-Public Use
  Company Number: PHHY2014GB057526

PATIENT
  Age: 17 Year
  Sex: Male

DRUGS (8)
  1. CICLOSPORIN [Suspect]
     Indication: IMMUNOSUPPRESSION
  2. TACROLIMUS [Suspect]
     Indication: IMMUNOSUPPRESSION
  3. BASILIXIMAB [Suspect]
     Indication: IMMUNOSUPPRESSION
  4. PREDNISOLONE [Suspect]
     Indication: IMMUNOSUPPRESSION
     Dosage: 5 MG, QD
  5. MYCOPHENOLATE MOFETIL [Suspect]
     Indication: IMMUNOSUPPRESSION
     Dosage: 500 MG, BID
  6. RITUXIMAB [Concomitant]
     Dosage: 3.75 MG/M2, UNK
  7. BELATACEPT [Concomitant]
     Indication: IMMUNOSUPPRESSION
     Dosage: 250 MG, UNK
  8. LEVETIRACETAM [Concomitant]
     Indication: CONVULSION
     Dosage: 500 MG, QD

REACTIONS (10)
  - Haemolytic uraemic syndrome [Recovering/Resolving]
  - Transplant rejection [Unknown]
  - Toxicity to various agents [Unknown]
  - Microangiopathy [Recovering/Resolving]
  - Microangiopathic haemolytic anaemia [Recovering/Resolving]
  - Haemolysis [Recovering/Resolving]
  - Thrombocytopenia [Recovering/Resolving]
  - Red cell fragmentation syndrome [Recovering/Resolving]
  - Haemoglobin decreased [Unknown]
  - Blood creatinine increased [Unknown]
